FAERS Safety Report 23113456 (Version 2)
Quarter: 2024Q2

REPORT INFORMATION
  Report Type: Report from Study
  Country: US (occurrence: US)
  Receive Date: 20231027
  Receipt Date: 20240404
  Transmission Date: 20240715
  Serious: Yes (Other)
  Sender: FDA-Public Use
  Company Number: US-TAKEDA-2023TUS100645

PATIENT
  Sex: Male

DRUGS (3)
  1. IXAZOMIB [Suspect]
     Active Substance: IXAZOMIB
     Indication: Plasma cell myeloma
     Dosage: 4 MILLIGRAM
     Route: 048
     Dates: start: 202309
  2. IXAZOMIB [Suspect]
     Active Substance: IXAZOMIB
     Indication: Myelodysplastic syndrome
     Dosage: 4 MILLIGRAM
     Route: 048
  3. POMALYST [Suspect]
     Active Substance: POMALIDOMIDE
     Indication: Plasma cell myeloma
     Dosage: UNK UNK, Q3WEEKS
     Route: 048

REACTIONS (3)
  - Pneumonia [Unknown]
  - Full blood count decreased [Unknown]
  - Cough [Unknown]
